FAERS Safety Report 9412905 (Version 2)
Quarter: 2013Q3

REPORT INFORMATION
  Report Type: Report from Study
  Country: US (occurrence: US)
  Receive Date: 20130722
  Receipt Date: 20130801
  Transmission Date: 20140515
  Serious: Yes (Other)
  Sender: FDA-Public Use
  Company Number: US-ROCHE-1247914

PATIENT
  Sex: Female

DRUGS (6)
  1. HERCEPTIN [Suspect]
     Indication: BREAST CANCER FEMALE
     Route: 065
  2. XELODA [Suspect]
     Indication: NEOPLASM MALIGNANT
     Route: 065
  3. XELODA [Suspect]
     Indication: OFF LABEL USE
     Dosage: DOSE REDUCED
     Route: 065
  4. XELODA [Suspect]
     Dosage: DOSE REDUCED
     Route: 065
  5. TAXOTERE [Concomitant]
  6. NEUPOGEN [Concomitant]

REACTIONS (4)
  - Pancytopenia [Unknown]
  - Drug intolerance [Unknown]
  - Neck pain [Unknown]
  - Nausea [Unknown]
